FAERS Safety Report 4661332-5 (Version None)
Quarter: 2005Q2

REPORT INFORMATION
  Report Type: 
  Country: None (occurrence: None)
  Receive Date: 20050427
  Receipt Date: 20050222
  Transmission Date: 20051028
  Serious: Yes (Life-Threatening, Hospitalization)
  Sender: FDA-Public Use
  Company Number: WAES 0502USA02813

PATIENT
  Sex: Male

DRUGS (3)
  1. EMEND [Suspect]
     Dosage: PO
     Route: 048
  2. CISPLATIN [Concomitant]
  3. ETOPOSIDE [Concomitant]

REACTIONS (2)
  - NEUTROPENIA [None]
  - VOMITING [None]
